FAERS Safety Report 4985772-X (Version None)
Quarter: 2006Q2

REPORT INFORMATION
  Report Type: 
  Country: None (occurrence: None)
  Receive Date: 20060428
  Receipt Date: 20060426
  Transmission Date: 20061013
  Serious: Yes (Death, Hospitalization)
  Sender: FDA-Public Use
  Company Number: AU-BRISTOL-MYERS SQUIBB COMPANY-13358056

PATIENT
  Age: 78 Year
  Sex: Female
  Weight: 47 kg

DRUGS (6)
  1. PACLITAXEL [Suspect]
     Indication: NON-SMALL CELL LUNG CANCER
     Route: 042
     Dates: start: 20051228, end: 20060412
  2. CARBOPLATIN [Suspect]
     Indication: NON-SMALL CELL LUNG CANCER
     Route: 042
     Dates: start: 20051228, end: 20060412
  3. LIPITOR [Concomitant]
     Route: 048
     Dates: end: 20060417
  4. FELODUR [Concomitant]
     Route: 048
     Dates: end: 20060417
  5. SYMBICORT [Concomitant]
     Route: 055
     Dates: end: 20060417
  6. SALBUTAMOL INHALER [Concomitant]
     Route: 055
     Dates: end: 20060417

REACTIONS (1)
  - SYNCOPE [None]
